FAERS Safety Report 16660051 (Version 1)
Quarter: 2019Q3

REPORT INFORMATION
  Report Type: Spontaneous
  Country: KR (occurrence: KR)
  Receive Date: 20190802
  Receipt Date: 20190802
  Transmission Date: 20191004
  Serious: Yes (Other)
  Sender: FDA-Public Use
  Company Number: KR-AMGEN-KORSP2019120437

PATIENT

DRUGS (4)
  1. HERZUMA [Concomitant]
     Active Substance: TRASTUZUMAB-PKRB
     Indication: BREAST CANCER
  2. DOCETAXEL. [Concomitant]
     Active Substance: DOCETAXEL
     Indication: BREAST CANCER
  3. XGEVA [Suspect]
     Active Substance: DENOSUMAB
     Indication: BREAST CANCER
     Dosage: UNK
     Route: 065
  4. PERJETA [Concomitant]
     Active Substance: PERTUZUMAB
     Indication: BREAST CANCER

REACTIONS (1)
  - Angina pectoris [Recovered/Resolved]
